FAERS Safety Report 18521494 (Version 1)
Quarter: 2020Q4

REPORT INFORMATION
  Report Type: Report from Study
  Country: US (occurrence: US)
  Receive Date: 20201119
  Receipt Date: 20201119
  Transmission Date: 20210114
  Serious: Yes (Life-Threatening, Disabling, Other)
  Sender: FDA-Public Use
  Company Number: NVSC2020US304455

PATIENT
  Sex: Male

DRUGS (1)
  1. ENTRESTO [Suspect]
     Active Substance: SACUBITRIL\VALSARTAN
     Indication: PRODUCT USED FOR UNKNOWN INDICATION
     Dosage: UNK
     Route: 065
     Dates: start: 202003

REACTIONS (10)
  - Memory impairment [Unknown]
  - Depression [Unknown]
  - Gait inability [Unknown]
  - Ejection fraction decreased [Unknown]
  - Confusional state [Unknown]
  - Aphasia [Unknown]
  - Renal failure [Unknown]
  - Product dose omission issue [Unknown]
  - Cardio-respiratory arrest [Unknown]
  - Paranoia [Unknown]
